FAERS Safety Report 8863385 (Version 2)
Quarter: 2012Q4

REPORT INFORMATION
  Report Type: 
  Country: CA (occurrence: CA)
  Receive Date: 20121024
  Receipt Date: 20121212
  Transmission Date: 20130627
  Serious: No
  Sender: FDA-Public Use
  Company Number: CA-B.I. PHARMACEUTICALS,INC./RIDGEFIELD-2012-BP-25987BP

PATIENT
  Sex: Male

DRUGS (1)
  1. MIRAPEX [Suspect]
     Indication: PARKINSONISM
     Dates: start: 20051020, end: 20100107

REACTIONS (6)
  - Pathological gambling [Recovered/Resolved]
  - Impulse-control disorder [Recovered/Resolved]
  - Rapid eye movements sleep abnormal [Recovered/Resolved]
  - Somnolence [Recovered/Resolved]
  - Fatigue [Unknown]
  - Food craving [Unknown]
